FAERS Safety Report 23271611 (Version 3)
Quarter: 2025Q4

REPORT INFORMATION
  Report Type: Spontaneous
  Country: EU (occurrence: EU)
  Receive Date: 20231207
  Receipt Date: 20251210
  Transmission Date: 20260118
  Serious: Yes (Hospitalization, Other)
  Sender: SANDOZ
  Company Number: EU-DSJP-DSE-2023-103210

PATIENT
  Age: 34 Year
  Sex: Female

DRUGS (5)
  1. ASPIRIN [Suspect]
     Active Substance: ASPIRIN
     Indication: Product used for unknown indication
     Dosage: UNK
     Route: 065
     Dates: start: 2022
  2. AMLODIPINE [Suspect]
     Active Substance: AMLODIPINE BESYLATE
     Indication: Hypertension
     Dosage: 0.02 MG/KG
     Route: 065
  3. NIFEDIPINE [Suspect]
     Active Substance: NIFEDIPINE
     Indication: Essential hypertension
     Dosage: UNK
     Route: 065
  4. OLMESARTAN MEDOXOMIL [Suspect]
     Active Substance: OLMESARTAN MEDOXOMIL
     Indication: Essential hypertension
     Dosage: 40 MG, QD
     Route: 065
     Dates: end: 2022
  5. OLMESARTAN MEDOXOMIL [Suspect]
     Active Substance: OLMESARTAN MEDOXOMIL
     Indication: Maternal exposure during pregnancy

REACTIONS (12)
  - Oligohydramnios [Recovered/Resolved]
  - Premature delivery [Unknown]
  - Bone disorder [Unknown]
  - Hypertension [Unknown]
  - Renal tubular dysfunction [Unknown]
  - Renin increased [Unknown]
  - Hypocalvaria [Unknown]
  - Blood aldosterone increased [Unknown]
  - Drug ineffective [Unknown]
  - Foetal exposure during pregnancy [Unknown]
  - Maternal exposure during pregnancy [Unknown]
  - Contraindicated product administered [Unknown]
